FAERS Safety Report 17347877 (Version 1)
Quarter: 2020Q1

REPORT INFORMATION
  Report Type: Spontaneous
  Country: MY (occurrence: MY)
  Receive Date: 20200130
  Receipt Date: 20200130
  Transmission Date: 20200409
  Serious: Yes (Other)
  Sender: FDA-Public Use
  Company Number: MY-GLAXOSMITHKLINE-MY2020GSK014259

PATIENT
  Age: 37 Year
  Sex: Female

DRUGS (10)
  1. CYCLOSPORINE. [Suspect]
     Active Substance: CYCLOSPORINE
     Indication: IMMUNE THROMBOCYTOPENIC PURPURA
     Dosage: 25 MG, QD
  2. USTEKINUMAB [Suspect]
     Active Substance: USTEKINUMAB
     Indication: PSORIASIS
     Dosage: UNK
  3. CYCLOSPORINE. [Suspect]
     Active Substance: CYCLOSPORINE
     Dosage: 75 MG, QD
  4. AZATHIOPRINE. [Suspect]
     Active Substance: AZATHIOPRINE
     Indication: IMMUNE THROMBOCYTOPENIC PURPURA
     Dosage: 100 MG, QD
  5. PREDNISOLONE. [Suspect]
     Active Substance: PREDNISOLONE
     Indication: IMMUNE THROMBOCYTOPENIC PURPURA
     Dosage: 7.5 MG, QD
  6. METHOTREXATE. [Suspect]
     Active Substance: METHOTREXATE
     Indication: PRODUCT USED FOR UNKNOWN INDICATION
     Dosage: 15 MG, WE (WEEKLY)
  7. METHOTREXATE. [Suspect]
     Active Substance: METHOTREXATE
     Dosage: 3.5 G
  8. PREDNISOLONE. [Suspect]
     Active Substance: PREDNISOLONE
     Dosage: 30 MG, QD
  9. ACITRETIN. [Suspect]
     Active Substance: ACITRETIN
     Indication: PSORIASIS
     Dosage: UNK
  10. HYDROXYCHLOROQUINE [Suspect]
     Active Substance: HYDROXYCHLOROQUINE
     Indication: SUBACUTE CUTANEOUS LUPUS ERYTHEMATOSUS
     Dosage: 200 MG, QD

REACTIONS (17)
  - Erythrodermic psoriasis [Recovered/Resolved]
  - Body tinea [Unknown]
  - Psoriasis [Recovered/Resolved]
  - Systemic lupus erythematosus disease activity index decreased [Recovered/Resolved]
  - Cutaneous vasculitis [Recovered/Resolved]
  - Herpes zoster [Unknown]
  - Therapeutic product effect incomplete [Unknown]
  - Psoriasis area severity index increased [Recovered/Resolved]
  - Subacute cutaneous lupus erythematosus [Recovered/Resolved]
  - Hypersensitivity vasculitis [Recovered/Resolved]
  - Musculoskeletal disorder [Unknown]
  - Dermatitis psoriasiform [Recovered/Resolved]
  - Condition aggravated [Recovered/Resolved]
  - Lupus nephritis [Recovered/Resolved]
  - Systemic lupus erythematosus [Recovered/Resolved]
  - Urinary tract infection [Recovered/Resolved]
  - Drug intolerance [Unknown]
